FAERS Safety Report 19500482 (Version 1)
Quarter: 2021Q3

REPORT INFORMATION
  Report Type: Spontaneous
  Country: CN (occurrence: CN)
  Receive Date: 20210706
  Receipt Date: 20210706
  Transmission Date: 20211014
  Serious: Yes (Hospitalization, Other)
  Sender: FDA-Public Use
  Company Number: CN-BAXTER-2021BAX018550

PATIENT
  Age: 12 Year
  Sex: Male
  Weight: 30 kg

DRUGS (7)
  1. 5% GLUCOSE  INJECTION [Suspect]
     Active Substance: DEXTROSE
     Indication: MEDICATION DILUTION
     Dosage: VAC REGIMEN, GS 500ML +  DOXORUBICIN HYDROCHLORIDE LIPOSOME INJECTION 85 MG
     Route: 041
     Dates: start: 20210511, end: 20210511
  2. VINCRISTINE SULFATE. [Suspect]
     Active Substance: VINCRISTINE SULFATE
     Indication: EWING^S SARCOMA
     Dosage: VAC REGIMEN, VINCRISTINE SULFATE POWDER FOR INJECTION 2 MG + NS 500ML.
     Route: 041
     Dates: start: 20210511, end: 20210511
  3. 0.9% SODIUM CHLORIDE INJECTION [Suspect]
     Active Substance: SODIUM CHLORIDE
     Indication: MEDICATION DILUTION
     Dosage: VAC REGIMEN, NS 500ML + ENDOXAN POWDER FOR INJECTION 1.35G
     Route: 041
     Dates: start: 20210511, end: 20210511
  4. 0.9% SODIUM CHLORIDE INJECTION [Suspect]
     Active Substance: SODIUM CHLORIDE
     Dosage: VAC REGIMEN, NS 500ML + VINCRISTINE SULFATE POWDER FOR INJECTION 2 MG
     Route: 041
     Dates: start: 20210511, end: 20210511
  5. HOLOXAN [Suspect]
     Active Substance: IFOSFAMIDE
     Indication: PRODUCT USED FOR UNKNOWN INDICATION
     Dosage: PRIOR DRUG
     Route: 065
  6. ENDOXAN [Suspect]
     Active Substance: CYCLOPHOSPHAMIDE
     Indication: EWING^S SARCOMA
     Dosage: VAC REGIMEN, ENDOXAN POWDER FOR INJECTION 1.35G + NS 500ML
     Route: 041
     Dates: start: 20210511, end: 20210511
  7. DOXORUBICIN HYDROCHLORIDE LIPOSOME [Suspect]
     Active Substance: DOXORUBICIN HYDROCHLORIDE
     Indication: EWING^S SARCOMA
     Dosage: VAC REGIMEN, DOXORUBICIN HYDROCHLORIDE LIPOSOME INJECTION 85 MG + GS 500ML
     Route: 041
     Dates: start: 20210511, end: 20210511

REACTIONS (2)
  - Myelosuppression [Recovering/Resolving]
  - Myelosuppression [Recovered/Resolved]

NARRATIVE: CASE EVENT DATE: 20210521
